FAERS Safety Report 6731076-4 (Version None)
Quarter: 2010Q2

REPORT INFORMATION
  Report Type: 
  Country: None (occurrence: None)
  Receive Date: 20100518
  Receipt Date: 20100511
  Transmission Date: 20101027
  Serious: Yes (Life-Threatening, Hospitalization, Disabling, Other)
  Sender: FDA-Public Use
  Company Number: FR-ABBOTT-05P-056-0320442-00

PATIENT
  Sex: Female
  Weight: 60 kg

DRUGS (7)
  1. HUMIRA [Suspect]
     Indication: RHEUMATOID ARTHRITIS
     Route: 058
     Dates: start: 20040226, end: 20040801
  2. CORTANCYL [Concomitant]
     Indication: RHEUMATOID ARTHRITIS
     Dates: start: 19990101
  3. KETOPROFEN [Concomitant]
     Indication: RHEUMATOID ARTHRITIS
     Dates: start: 19960101
  4. DIGOXIN [Concomitant]
     Indication: TACHYCARDIA
     Dates: start: 19930101
  5. ISOPTIN [Concomitant]
     Indication: TACHYCARDIA
     Dates: start: 19910101
  6. MOPRAL [Concomitant]
     Indication: PROPHYLAXIS AGAINST GASTROINTESTINAL ULCER
     Dates: start: 19990101
  7. COMMERCIAL HUMIRA [Concomitant]
     Indication: RHEUMATOID ARTHRITIS
     Route: 058
     Dates: start: 20031016

REACTIONS (5)
  - ARTHRITIS BACTERIAL [None]
  - BACTERAEMIA [None]
  - BRAIN ABSCESS [None]
  - ENDOCARDITIS [None]
  - SEPSIS [None]
